FAERS Safety Report 24812270 (Version 2)
Quarter: 2025Q1

REPORT INFORMATION
  Report Type: Spontaneous
  Country: US (occurrence: US)
  Receive Date: 20250106
  Receipt Date: 20250108
  Transmission Date: 20250408
  Serious: No
  Sender: ABBVIE
  Company Number: US-ABBVIE-6071388

PATIENT
  Weight: 48 kg

DRUGS (1)
  1. CREON [Suspect]
     Active Substance: PANCRELIPASE AMYLASE\PANCRELIPASE LIPASE\PANCRELIPASE PROTEASE
     Indication: Pancreatic failure
     Route: 050

REACTIONS (4)
  - Nervous system disorder [Unknown]
  - Gastritis [Unknown]
  - Duodenitis [Unknown]
  - Oesophagitis [Unknown]
